FAERS Safety Report 9278223 (Version 1)
Quarter: 2013Q2

REPORT INFORMATION
  Report Type: Spontaneous
  Country: US (occurrence: US)
  Receive Date: 20130508
  Receipt Date: 20130508
  Transmission Date: 20140414
  Serious: Yes (Other)
  Sender: FDA-Public Use
  Company Number: US-PFIZER INC-2013130646

PATIENT
  Age: 44 Year
  Sex: Male
  Weight: 136.5 kg

DRUGS (7)
  1. LYRICA [Suspect]
     Indication: FIBROMYALGIA
     Dosage: 75 MG, 2X/DAY
     Route: 048
  2. LYRICA [Suspect]
     Indication: NEURALGIA
     Dosage: 150 MG, 2X/DAY
     Route: 048
  3. MOBIC [Concomitant]
     Indication: INFLAMMATION
     Dosage: 15 MG, 1X/DAY
  4. FLEXERIL [Concomitant]
     Indication: MUSCLE SPASMS
     Dosage: UNKNOWN DOSE 2XDAY
  5. KLONOPIN [Concomitant]
     Indication: PANIC ATTACK
     Dosage: 1 MG, 1X/DAY (AT BEDTIME)
  6. LORTAB [Concomitant]
     Indication: PAIN
     Dosage: 10-500, 4X/DAY
  7. FISH OIL [Concomitant]
     Dosage: 1200 MG, 2X/DAY

REACTIONS (1)
  - Type 2 diabetes mellitus [Not Recovered/Not Resolved]
